FAERS Safety Report 12775126 (Version 3)
Quarter: 2016Q4

REPORT INFORMATION
  Report Type: Spontaneous
  Country: AT (occurrence: AT)
  Receive Date: 20160923
  Receipt Date: 20161118
  Transmission Date: 20170207
  Serious: Yes (Death, Hospitalization)
  Sender: FDA-Public Use
  Company Number: AT-AMGEN-AUTSP2016129202

PATIENT
  Age: 57 Year
  Sex: Male
  Weight: 93 kg

DRUGS (6)
  1. RABEPRAZOLE [Concomitant]
     Active Substance: RABEPRAZOLE
     Indication: DYSPEPSIA
  2. BLINCYTO [Suspect]
     Active Substance: BLINATUMOMAB
     Indication: ACUTE LYMPHOCYTIC LEUKAEMIA
     Dosage: 9 MUG, QD
     Route: 042
     Dates: start: 20160909, end: 20160913
  3. TRITTICO [Concomitant]
     Active Substance: TRAZODONE HYDROCHLORIDE
     Indication: DEPRESSION
     Dosage: 150 MG, UNK
     Dates: start: 2015
  4. HALCION [Concomitant]
     Active Substance: TRIAZOLAM
     Dosage: 0.25 UNK, AS NECESSARY
  5. LEVOFLOXACIN. [Concomitant]
     Active Substance: LEVOFLOXACIN
  6. FERLIN [Concomitant]
     Indication: DEPRESSION
     Dosage: 60 MG, UNK
     Dates: start: 2015

REACTIONS (2)
  - Acute lymphocytic leukaemia [Fatal]
  - Hepatic failure [Fatal]

NARRATIVE: CASE EVENT DATE: 20160912
